FAERS Safety Report 15091625 (Version 1)
Quarter: 2018Q2

REPORT INFORMATION
  Report Type: Report from Study
  Country: US (occurrence: US)
  Receive Date: 20180629
  Receipt Date: 20180629
  Transmission Date: 20180711
  Serious: No
  Sender: FDA-Public Use
  Company Number: US-AMGEN-USASP2011022690

PATIENT
  Age: 65 Year
  Sex: Female

DRUGS (6)
  1. PROLIA [Suspect]
     Active Substance: DENOSUMAB
     Indication: OSTEOPOROSIS
     Dosage: 60 MG, Q6MO
     Dates: start: 20110412
  2. ATIVAN [Concomitant]
     Active Substance: LORAZEPAM
  3. VITAMIN D [Concomitant]
     Active Substance: CHOLECALCIFEROL
  4. CALCIUM [Concomitant]
     Active Substance: CALCIUM
  5. ATROVENT [Concomitant]
     Active Substance: IPRATROPIUM BROMIDE
  6. ALBUTEROL                          /00139501/ [Concomitant]
     Active Substance: ALBUTEROL

REACTIONS (7)
  - Dyspnoea [Unknown]
  - Rash pruritic [Recovered/Resolved]
  - Back pain [Unknown]
  - Weight increased [Unknown]
  - Rash [Not Recovered/Not Resolved]
  - Dysuria [Unknown]
  - Gastric dilatation [Not Recovered/Not Resolved]

NARRATIVE: CASE EVENT DATE: 20110412
